FAERS Safety Report 9729029 (Version 2)
Quarter: 2013Q4

REPORT INFORMATION
  Report Type: Spontaneous
  Country: VE (occurrence: VE)
  Receive Date: 20131204
  Receipt Date: 20131213
  Transmission Date: 20140711
  Serious: Yes (Death)
  Sender: FDA-Public Use
  Company Number: VE-PFIZER INC-2013346143

PATIENT
  Age: 62 Year
  Sex: Male

DRUGS (2)
  1. LIPITOR [Suspect]
     Indication: HYPERCHOLESTEROLAEMIA
     Dosage: 80 MG, 1X/DAY
     Route: 048
     Dates: start: 2011
  2. LIPITOR [Suspect]
     Indication: HYPERTRIGLYCERIDAEMIA

REACTIONS (1)
  - Cerebrovascular accident [Fatal]
